FAERS Safety Report 6277740-5 (Version None)
Quarter: 2009Q3

REPORT INFORMATION
  Report Type: 
  Country: None (occurrence: None)
  Receive Date: 20090722
  Receipt Date: 20090716
  Transmission Date: 20100115
  Serious: Yes (Life-Threatening)
  Sender: FDA-Public Use
  Company Number: B0576954A

PATIENT
  Sex: Female

DRUGS (16)
  1. AUGMENTIN '125' [Suspect]
     Indication: DRUG USE FOR UNKNOWN INDICATION
     Route: 048
     Dates: start: 20090115, end: 20090116
  2. AUGMENTIN '125' [Suspect]
     Indication: DRUG USE FOR UNKNOWN INDICATION
     Route: 042
     Dates: start: 20090117, end: 20090118
  3. COUMADIN [Suspect]
     Indication: DRUG USE FOR UNKNOWN INDICATION
     Dosage: 1MG PER DAY
     Route: 048
     Dates: start: 20090114, end: 20090116
  4. CIPROFLOXACIN HCL [Suspect]
     Indication: DRUG USE FOR UNKNOWN INDICATION
     Dosage: 500MG PER DAY
     Route: 048
     Dates: start: 20090114, end: 20090114
  5. ALDACTAZINE [Concomitant]
     Route: 065
  6. ASPIRIN [Concomitant]
     Route: 065
  7. DIOSMINE [Concomitant]
     Route: 065
  8. VASTAREL [Concomitant]
     Route: 065
  9. PIASCLEDINE [Concomitant]
     Route: 065
  10. HEXAQUINE [Concomitant]
     Route: 065
  11. VOLTAREN [Concomitant]
     Route: 065
  12. IMOVANE [Concomitant]
     Route: 065
  13. LOVENOX [Concomitant]
     Dosage: 6000IU PER DAY
     Route: 042
     Dates: start: 20090111, end: 20090116
  14. CEFTRIAXONE [Concomitant]
     Route: 065
     Dates: start: 20090118, end: 20090120
  15. PREVISCAN [Concomitant]
     Dosage: 20MG PER DAY
     Route: 065
     Dates: start: 20090111, end: 20090113
  16. ROVAMYCINE [Concomitant]
     Dosage: 1.5MU THREE TIMES PER DAY
     Route: 065
     Dates: start: 20090111, end: 20090113

REACTIONS (7)
  - DRUG INTERACTION [None]
  - HEPATIC ENZYME INCREASED [None]
  - INTERNATIONAL NORMALISED RATIO INCREASED [None]
  - MIXED LIVER INJURY [None]
  - OVERDOSE [None]
  - RED BLOOD CELL COUNT DECREASED [None]
  - SMALL INTESTINAL HAEMORRHAGE [None]
